FAERS Safety Report 21615372 (Version 1)
Quarter: 2022Q4

REPORT INFORMATION
  Report Type: Spontaneous
  Country: TR (occurrence: TR)
  Receive Date: 20221118
  Receipt Date: 20221118
  Transmission Date: 20230113
  Serious: Yes (Death)
  Sender: FDA-Public Use
  Company Number: TR-ELI_LILLY_AND_COMPANY-TR202211007747

PATIENT
  Age: 22 Year
  Sex: Male

DRUGS (2)
  1. PROZAC [Interacting]
     Active Substance: FLUOXETINE HYDROCHLORIDE
     Indication: Product used for unknown indication
     Dosage: UNK UNK, UNKNOWN
     Route: 065
  2. COCAINE [Interacting]
     Active Substance: COCAINE
     Indication: Product used for unknown indication
     Dosage: UNK UNK, UNKNOWN
     Route: 065

REACTIONS (5)
  - Fall [Fatal]
  - Blood alcohol increased [Fatal]
  - Hallucination [Fatal]
  - Completed suicide [Fatal]
  - Drug interaction [Unknown]

NARRATIVE: CASE EVENT DATE: 20220312
